FAERS Safety Report 8080877-1 (Version None)
Quarter: 2012Q1

REPORT INFORMATION
  Report Type: 
  Country: None (occurrence: None)
  Receive Date: 20120130
  Receipt Date: 20120116
  Transmission Date: 20120608
  Serious: Yes (Hospitalization)
  Sender: FDA-Public Use
  Company Number: JP-ROCHE-1033507

PATIENT
  Sex: Male

DRUGS (10)
  1. COPEGUS [Suspect]
     Dates: start: 20110905, end: 20110905
  2. COPEGUS [Suspect]
     Dates: start: 20110906, end: 20110928
  3. ZOLPIDEM [Concomitant]
     Route: 048
     Dates: start: 20111012, end: 20111030
  4. PEGINTERFERON ALFA-2A [Suspect]
     Indication: HEPATITIS C
     Route: 058
     Dates: start: 20110216, end: 20110616
  5. COPEGUS [Suspect]
     Dates: start: 20110630, end: 20110901
  6. COPEGUS [Suspect]
     Dates: start: 20110902, end: 20110902
  7. PEGINTERFERON ALFA-2A [Suspect]
     Route: 058
     Dates: start: 20110630, end: 20110922
  8. COPEGUS [Suspect]
     Indication: HEPATITIS C
     Dates: start: 20110216, end: 20110623
  9. TMC435 (NS3/4A PROTEASE INHIBITOR) [Suspect]
     Indication: HEPATITIS C
     Dates: start: 20110216, end: 20110512
  10. ZOLPIDEM [Concomitant]
     Route: 048
     Dates: start: 20110525, end: 20111010

REACTIONS (2)
  - INTERVERTEBRAL DISC PROTRUSION [None]
  - BACK PAIN [None]
